FAERS Safety Report 10264850 (Version 8)
Quarter: 2017Q1

REPORT INFORMATION
  Report Type: Report from Study
  Country: ES (occurrence: ES)
  Receive Date: 20140627
  Receipt Date: 20170125
  Transmission Date: 20170428
  Serious: Yes (Hospitalization)
  Sender: FDA-Public Use
  Company Number: ES-ROCHE-1423579

PATIENT
  Age: 68 Year
  Sex: Female
  Weight: 73 kg

DRUGS (19)
  1. OMEPRAZOLE. [Concomitant]
     Active Substance: OMEPRAZOLE
     Route: 065
     Dates: start: 20151026
  2. SIMVASTATIN. [Concomitant]
     Active Substance: SIMVASTATIN
     Route: 065
  3. SYMBICORT [Concomitant]
     Active Substance: BUDESONIDE\FORMOTEROL FUMARATE DIHYDRATE
     Dosage: TURBUHALER , DOSE 4 INH
     Route: 065
     Dates: start: 20151026
  4. XALACOM [Concomitant]
     Active Substance: LATANOPROST\TIMOLOL MALEATE
  5. OBINUTUZUMAB [Suspect]
     Active Substance: OBINUTUZUMAB
     Dosage: MOST RECENT DOSE PRIOR TO SAE: 02/DEC/2014
     Route: 042
     Dates: start: 20140701, end: 20141202
  6. BENDAMUSTINE [Suspect]
     Active Substance: BENDAMUSTINE
     Indication: CHRONIC LYMPHOCYTIC LEUKAEMIA
     Dosage: MOST RECENT DOSE PRIOR TO SAE: 19/JUN/2014 AND 03/DEC/2014
     Route: 042
     Dates: start: 20140618, end: 20141203
  7. OMEPRAZOLE. [Concomitant]
     Active Substance: OMEPRAZOLE
     Route: 065
  8. SIMVASTATIN. [Concomitant]
     Active Substance: SIMVASTATIN
     Route: 065
     Dates: start: 20151026
  9. AERIUS (SPAIN) [Concomitant]
     Indication: PYREXIA
     Route: 065
     Dates: start: 20150404, end: 20150410
  10. PANTOPRAZOL [Concomitant]
     Active Substance: PANTOPRAZOLE SODIUM
  11. RILAST [Concomitant]
     Active Substance: BUDESONIDE\FORMOTEROL
     Route: 065
  12. AERIUS (SPAIN) [Concomitant]
     Indication: URINARY TRACT INFECTION BACTERIAL
  13. AERIUS (SPAIN) [Concomitant]
     Indication: BRONCHITIS
  14. BRETARIS [Concomitant]
     Active Substance: ACLIDINIUM BROMIDE
  15. OBINUTUZUMAB [Suspect]
     Active Substance: OBINUTUZUMAB
     Indication: CHRONIC LYMPHOCYTIC LEUKAEMIA
     Dosage: MOST RECENT DOSE PRIOR TO SAE: 02/DEC/2014?TEMPORARILY INTERRUPTED ON 23/JUL/2014
     Route: 042
     Dates: start: 20140617
  16. ITRACONAZOLE. [Concomitant]
     Active Substance: ITRACONAZOLE
     Route: 065
     Dates: start: 20151026
  17. GLICAZIDA [Concomitant]
     Active Substance: GLICLAZIDE
  18. SINGULAIR [Concomitant]
     Active Substance: MONTELUKAST SODIUM
  19. RANITIDINE. [Concomitant]
     Active Substance: RANITIDINE
     Route: 065

REACTIONS (7)
  - Febrile neutropenia [Recovered/Resolved]
  - Infective exacerbation of bronchiectasis [Recovered/Resolved]
  - Febrile neutropenia [Recovered/Resolved with Sequelae]
  - Bronchopulmonary aspergillosis [Recovered/Resolved]
  - Superinfection [Recovered/Resolved]
  - Bronchiectasis [Recovered/Resolved]
  - Infective exacerbation of bronchiectasis [Recovered/Resolved]

NARRATIVE: CASE EVENT DATE: 20140622
